FAERS Safety Report 9962809 (Version 2)
Quarter: 2014Q1

REPORT INFORMATION
  Report Type: Report from Study
  Country: US (occurrence: US)
  Receive Date: 20140305
  Receipt Date: 20140305
  Transmission Date: 20141002
  Serious: No
  Sender: FDA-Public Use
  Company Number: US-ABBVIE-13P-163-1079321-00

PATIENT
  Age: 76 Year
  Sex: Female
  Weight: 71.73 kg

DRUGS (14)
  1. HUMIRA [Suspect]
     Indication: RHEUMATOID ARTHRITIS
     Dates: start: 20130130
  2. PREDNISONE [Concomitant]
     Indication: RHEUMATOID ARTHRITIS
     Dates: end: 201304
  3. PREDNISONE [Concomitant]
     Dates: start: 201304
  4. HYDROXYCHLOROQUINE [Concomitant]
     Indication: RHEUMATOID ARTHRITIS
  5. VITAMIN D NOS [Concomitant]
     Indication: VITAMIN SUPPLEMENTATION
  6. UNNAMED INHALER [Concomitant]
     Indication: INTERSTITIAL LUNG DISEASE
     Route: 055
  7. FLOVENT [Concomitant]
     Indication: INTERSTITIAL LUNG DISEASE
     Dosage: 220 MCG 2 PUFFS IN AM
     Route: 055
  8. ALBUTEROL [Concomitant]
     Indication: INTERSTITIAL LUNG DISEASE
  9. LISINOPRIL [Concomitant]
     Indication: HYPERTENSION
  10. OCUVITE [Concomitant]
     Indication: EYE DISORDER
  11. CRANBERRY [Concomitant]
     Indication: SUPPLEMENTATION THERAPY
  12. PANTOPRAZOLE [Concomitant]
     Indication: GASTROOESOPHAGEAL REFLUX DISEASE
  13. CENTRUM SILVER [Concomitant]
     Indication: VITAMIN SUPPLEMENTATION
  14. PROAIR [Concomitant]
     Indication: PRODUCT USED FOR UNKNOWN INDICATION

REACTIONS (9)
  - Haemorrhoids [Not Recovered/Not Resolved]
  - Haemorrhoidal haemorrhage [Unknown]
  - Gastrooesophageal reflux disease [Not Recovered/Not Resolved]
  - Haemorrhoids [Not Recovered/Not Resolved]
  - Thrombosis [Not Recovered/Not Resolved]
  - Bursitis [Not Recovered/Not Resolved]
  - Gait disturbance [Not Recovered/Not Resolved]
  - Mobility decreased [Not Recovered/Not Resolved]
  - Arthralgia [Not Recovered/Not Resolved]
